FAERS Safety Report 6588283-3 (Version None)
Quarter: 2010Q1

REPORT INFORMATION
  Report Type: 
  Country: None (occurrence: None)
  Receive Date: 20100204
  Receipt Date: 20100125
  Transmission Date: 20100710
  Serious: Yes (Other)
  Sender: FDA-Public Use
  Company Number: 1000011248

PATIENT
  Age: 55 Year
  Sex: Male

DRUGS (3)
  1. LEXAPRO [Suspect]
     Indication: DEPRESSIVE SYMPTOM
     Dosage: 10 MG, (10 MG, 1 IN 1 D), ORAL
     Route: 048
     Dates: start: 20091230, end: 20100104
  2. AMITRIPTYLINE HCL [Concomitant]
  3. OXAZEPAM [Concomitant]

REACTIONS (2)
  - ERYTHEMA MULTIFORME [None]
  - PHOTOSENSITIVITY REACTION [None]
